FAERS Safety Report 17088144 (Version 1)
Quarter: 2019Q4

REPORT INFORMATION
  Report Type: Spontaneous
  Country: US (occurrence: US)
  Receive Date: 20191128
  Receipt Date: 20191128
  Transmission Date: 20200122
  Serious: Yes (Other)
  Sender: FDA-Public Use
  Company Number: US-BAUSCH-BL-2019-057869

PATIENT
  Age: 51 Year
  Sex: Male

DRUGS (2)
  1. LOTEMAX [Suspect]
     Active Substance: LOTEPREDNOL ETABONATE
     Indication: POST PROCEDURAL INFLAMMATION
     Dosage: THERAPY STARTED ABOUT FOR A WEEK AND HALF
     Route: 047
     Dates: start: 201908, end: 2019
  2. LOTEMAX [Suspect]
     Active Substance: LOTEPREDNOL ETABONATE
     Route: 047
     Dates: start: 2019, end: 2019

REACTIONS (4)
  - Eye operation [Recovering/Resolving]
  - Conjunctivitis [Unknown]
  - Product prescribing error [Unknown]
  - Inappropriate schedule of product administration [Unknown]

NARRATIVE: CASE EVENT DATE: 2019
